FAERS Safety Report 5088395-X (Version None)
Quarter: 2006Q3

REPORT INFORMATION
  Report Type: 
  Country: None (occurrence: None)
  Receive Date: 20060821
  Receipt Date: 20060807
  Transmission Date: 20061208
  Serious: Yes (Other)
  Sender: FDA-Public Use
  Company Number: 2006-146366-NL

PATIENT
  Age: 35 Year
  Sex: Female

DRUGS (5)
  1. GONADOTROPINS [Suspect]
     Indication: OVARIAN HYPERSTIMULATION SYNDROME
  2. GONADOTROPINS [Suspect]
     Indication: OVARIAN HYPERSTIMULATION SYNDROME
  3. GONADOTROPINS [Suspect]
     Indication: OVARIAN HYPERSTIMULATION SYNDROME
  4. GONADOTROPIN RELEASING HORMONE (GNRH) [Suspect]
  5. PROGESTERONE SUPPLEMENTATION [Suspect]
     Dosage: INTRAMUSCULAR
     Route: 030

REACTIONS (5)
  - CAESAREAN SECTION [None]
  - ECTOPIC PREGNANCY [None]
  - HETEROTOPIC PREGNANCY [None]
  - METRORRHAGIA [None]
  - UTERINE HAEMATOMA [None]
